FAERS Safety Report 5730877-9 (Version None)
Quarter: 2008Q2

REPORT INFORMATION
  Report Type: 
  Country: None (occurrence: None)
  Receive Date: 20080507
  Receipt Date: 20080429
  Transmission Date: 20081010
  Serious: Yes (Hospitalization, Other)
  Sender: FDA-Public Use
  Company Number: US-PFIZER INC-2008037517

PATIENT
  Age: 64 Year
  Sex: Female

DRUGS (6)
  1. CELEBREX [Suspect]
     Indication: RHEUMATOID ARTHRITIS
  2. REMICADE [Suspect]
     Indication: RHEUMATOID ARTHRITIS
     Route: 042
  3. COUMADIN [Concomitant]
  4. PLAQUENIL [Concomitant]
  5. PREDNISONE TAB [Concomitant]
  6. FOSAMAX [Concomitant]

REACTIONS (3)
  - CEREBRAL ARTERY OCCLUSION [None]
  - DRUG LEVEL DECREASED [None]
  - TRANSIENT ISCHAEMIC ATTACK [None]
